FAERS Safety Report 11220453 (Version 1)
Quarter: 2015Q2

REPORT INFORMATION
  Report Type: Spontaneous
  Country: TW (occurrence: TW)
  Receive Date: 20150625
  Receipt Date: 20150625
  Transmission Date: 20150821
  Serious: Yes (Hospitalization, Other)
  Sender: FDA-Public Use
  Company Number: TW-PAR PHARMACEUTICAL, INC-2015SCPR014076

PATIENT

DRUGS (1)
  1. KETALAR [Suspect]
     Active Substance: KETAMINE HYDROCHLORIDE
     Indication: SUBSTANCE USE
     Dosage: UNK UNK, UNKNOWN
     Route: 045

REACTIONS (9)
  - Hydronephrosis [Recovering/Resolving]
  - Infection [Recovering/Resolving]
  - Drug abuse [Unknown]
  - Renal impairment [Recovering/Resolving]
  - Reduced bladder capacity [Unknown]
  - Hepatic function abnormal [Recovering/Resolving]
  - Cholelithiasis [Unknown]
  - Lower urinary tract symptoms [Recovering/Resolving]
  - Altered state of consciousness [Recovering/Resolving]
